FAERS Safety Report 5476326-X (Version None)
Quarter: 2007Q4

REPORT INFORMATION
  Report Type: 
  Country: None (occurrence: None)
  Receive Date: 20071003
  Receipt Date: 20070921
  Transmission Date: 20080405
  Serious: Yes (Other)
  Sender: FDA-Public Use
  Company Number: US-PFIZER INC-2007052816

PATIENT
  Sex: Female
  Weight: 64.9 kg

DRUGS (8)
  1. EXUBERA [Suspect]
     Indication: TYPE 2 DIABETES MELLITUS
     Route: 055
  2. EXUBERA [Suspect]
     Indication: DIABETES MELLITUS INADEQUATE CONTROL
  3. GLUCOPHAGE [Concomitant]
     Indication: TYPE 2 DIABETES MELLITUS
     Route: 048
  4. AVANDARYL [Concomitant]
     Indication: TYPE 2 DIABETES MELLITUS
     Route: 048
  5. LISINOPRIL [Concomitant]
     Indication: HYPERTENSION
     Dosage: DAILY DOSE:5MG
  6. LIPITOR [Concomitant]
     Dosage: DAILY DOSE:10MG
  7. AMITIZA [Concomitant]
  8. ASPIRIN [Concomitant]
     Dosage: DAILY DOSE:81MG

REACTIONS (4)
  - BLOOD GLUCOSE DECREASED [None]
  - CHILLS [None]
  - DIZZINESS [None]
  - TREMOR [None]
